FAERS Safety Report 18149699 (Version 1)
Quarter: 2020Q3

REPORT INFORMATION
  Report Type: Spontaneous
  Country: US (occurrence: US)
  Receive Date: 20200813
  Receipt Date: 20200813
  Transmission Date: 20201103
  Serious: Yes (Other)
  Sender: FDA-Public Use
  Company Number: None

PATIENT
  Age: 32 Year
  Sex: Female
  Weight: 56.7 kg

DRUGS (2)
  1. NEXPLANON [Suspect]
     Active Substance: ETONOGESTREL
  2. AYGESTIN [Suspect]
     Active Substance: NORETHINDRONE ACETATE

REACTIONS (4)
  - Vaginal haemorrhage [None]
  - Menorrhagia [None]
  - Initial insomnia [None]
  - Headache [None]

NARRATIVE: CASE EVENT DATE: 20191021
